FAERS Safety Report 24728521 (Version 1)
Quarter: 2024Q4

REPORT INFORMATION
  Report Type: Spontaneous
  Country: CN (occurrence: CN)
  Receive Date: 20241212
  Receipt Date: 20241212
  Transmission Date: 20250115
  Serious: Yes (Life-Threatening, Hospitalization)
  Sender: ELI LILLY AND COMPANY
  Company Number: CN-ELI_LILLY_AND_COMPANY-CN202412005370

PATIENT
  Age: 77 Year
  Sex: Male
  Weight: 60 kg

DRUGS (4)
  1. HUMALOG [Suspect]
     Active Substance: INSULIN LISPRO
     Indication: Lacunar infarction
     Dosage: 8 U, TID
     Route: 058
     Dates: start: 20220112, end: 20241107
  2. HUMALOG [Suspect]
     Active Substance: INSULIN LISPRO
     Indication: Type 2 diabetes mellitus
  3. HUMALOG [Suspect]
     Active Substance: INSULIN LISPRO
     Indication: Diabetic complication
  4. HUMALOG [Suspect]
     Active Substance: INSULIN LISPRO
     Indication: Chronic kidney disease

REACTIONS (2)
  - Hypoglycaemic encephalopathy [Recovered/Resolved]
  - Off label use [Unknown]

NARRATIVE: CASE EVENT DATE: 20241106
